FAERS Safety Report 23315431 (Version 1)
Quarter: 2023Q4

REPORT INFORMATION
  Report Type: Spontaneous
  Country: US (occurrence: None)
  Receive Date: 20231218
  Receipt Date: 20231218
  Transmission Date: 20240110
  Serious: Yes (Life-Threatening, Disabling)
  Sender: FDA-Public Use
  Company Number: None

PATIENT
  Age: 81 Year
  Sex: Female
  Weight: 49.44 kg

DRUGS (8)
  1. LANTUS SOLOSTAR [Suspect]
     Active Substance: INSULIN GLARGINE
     Indication: Diabetes mellitus
     Dosage: OTHER STRENGTH : UNITS/ML;?FREQUENCY : AT BEDTIME;?OTHER ROUTE : IN;?
     Route: 050
     Dates: start: 2023, end: 20231114
  2. HUMALOG INSULIN PEN [Concomitant]
  3. TRUE METRIX B.S. METER [Concomitant]
  4. UNIFINE PENTIPS [Concomitant]
  5. DEVICE [Concomitant]
     Active Substance: DEVICE
  6. ALBUTEROL SULFATE [Concomitant]
     Active Substance: ALBUTEROL SULFATE
  7. VITAMIN D3 [Concomitant]
     Active Substance: CHOLECALCIFEROL
  8. TYLENOL [Concomitant]
     Active Substance: ACETAMINOPHEN

REACTIONS (3)
  - Middle insomnia [None]
  - Apnoea [None]
  - Cough [None]

NARRATIVE: CASE EVENT DATE: 20231111
